FAERS Safety Report 20321023 (Version 1)
Quarter: 2022Q1

REPORT INFORMATION
  Report Type: Spontaneous
  Country: DE (occurrence: DE)
  Receive Date: 20220111
  Receipt Date: 20220111
  Transmission Date: 20220423
  Serious: Yes (Hospitalization)
  Sender: FDA-Public Use
  Company Number: DE-BIOGEN-2022BI01083204

PATIENT
  Sex: Female

DRUGS (2)
  1. TYSABRI [Suspect]
     Active Substance: NATALIZUMAB
     Indication: Multiple sclerosis
     Route: 042
     Dates: start: 2010, end: 2021
  2. TYSABRI [Suspect]
     Active Substance: NATALIZUMAB
     Dosage: (2X150 MG)
     Route: 058
     Dates: start: 2021

REACTIONS (1)
  - Thyroid mass [Recovered/Resolved]
